FAERS Safety Report 7238691-2 (Version None)
Quarter: 2011Q1

REPORT INFORMATION
  Report Type: 
  Country: None (occurrence: None)
  Receive Date: 20110121
  Receipt Date: 20110111
  Transmission Date: 20110831
  Serious: Yes (Death)
  Sender: FDA-Public Use
  Company Number: US-ACTELION-A-NJ2011-43361

PATIENT

DRUGS (3)
  1. COUMADIN [Concomitant]
  2. REVATIO [Concomitant]
  3. BOSENTAN TABLET UNKNOWN US MG [Suspect]
     Indication: PULMONARY ARTERIAL HYPERTENSION
     Dosage: UNK
     Route: 048
     Dates: start: 20080307, end: 20101226

REACTIONS (1)
  - DEATH [None]
